FAERS Safety Report 5198849-3 (Version None)
Quarter: 2007Q1

REPORT INFORMATION
  Report Type: 
  Country: None (occurrence: None)
  Receive Date: 20070104
  Receipt Date: 20070102
  Transmission Date: 20070707
  Serious: Yes (Life-Threatening, Hospitalization, Other)
  Sender: FDA-Public Use
  Company Number: US-JNJFOC-20060904634

PATIENT
  Sex: Female
  Weight: 83.92 kg

DRUGS (27)
  1. REMICADE [Suspect]
     Dosage: 10 VIALS
     Route: 042
  2. REMICADE [Suspect]
     Dosage: 5 VIALS
     Route: 042
  3. REMICADE [Suspect]
     Dosage: 5 VIALS
     Route: 042
  4. REMICADE [Suspect]
     Dosage: 5 VIALS
     Route: 042
  5. REMICADE [Suspect]
     Indication: PSORIATIC ARTHROPATHY
     Dosage: 5 VIALS
     Route: 042
  6. PRILOSEC [Concomitant]
     Indication: GASTROOESOPHAGEAL REFLUX DISEASE
  7. OXYCODONE HCL [Concomitant]
     Dosage: 10 MG EVERY 4 TO 6 HOURS
  8. FENTANYL TRANSDERMAL SYSTEM [Concomitant]
     Indication: NEURALGIA
  9. ALLEGRA [Concomitant]
  10. ZANAFLEX [Concomitant]
     Indication: MYALGIA
  11. XANAX [Concomitant]
     Indication: ANXIETY
  12. COMBIVENT [Concomitant]
     Dosage: 2 PUFFS EVERY 6 HOURS AS NEEDED
  13. MULTIPLE INHALERS [Concomitant]
  14. AMBIEN [Concomitant]
     Indication: INSOMNIA
  15. CYMBALTA [Concomitant]
     Indication: DIABETIC NEUROPATHY
  16. CYMBALTA [Concomitant]
     Indication: DEPRESSION
  17. XOPENEX [Concomitant]
     Indication: DYSPNOEA
  18. XOPENEX [Concomitant]
     Indication: WHEEZING
  19. MAXAIR [Concomitant]
     Dosage: 2 PUFFS 3 TIMES A DAY
  20. CLONAZEPAM [Concomitant]
     Indication: ANXIETY
     Dosage: HS
  21. REQUIP [Concomitant]
     Indication: RESTLESS LEGS SYNDROME
     Dosage: HS
  22. ELAVIL [Concomitant]
     Indication: FIBROMYALGIA
     Dosage: HS
  23. PERCOCET [Concomitant]
     Indication: PAIN
     Dosage: DOSE: 10/650
  24. CALCITRATE [Concomitant]
  25. NEXIUM [Concomitant]
     Indication: GASTROOESOPHAGEAL REFLUX DISEASE
  26. ADVAIR DISKUS 250/50 [Concomitant]
  27. DETROL [Concomitant]
     Indication: BLADDER DISORDER

REACTIONS (8)
  - ADRENAL INSUFFICIENCY [None]
  - ASTHENIA [None]
  - BLOOD POTASSIUM DECREASED [None]
  - DRUG INEFFECTIVE [None]
  - FATIGUE [None]
  - GASTROINTESTINAL HAEMORRHAGE [None]
  - HYPOTENSION [None]
  - NAUSEA [None]
